FAERS Safety Report 10025423 (Version 1)
Quarter: 2014Q1

REPORT INFORMATION
  Report Type: Spontaneous
  Country: GB (occurrence: GB)
  Receive Date: 20140320
  Receipt Date: 20140320
  Transmission Date: 20141002
  Serious: Yes (Other)
  Sender: FDA-Public Use
  Company Number: GB-JNJFOC-20140307995

PATIENT
  Sex: 0

DRUGS (4)
  1. INFLIXIMAB, RECOMBINANT [Suspect]
     Indication: PSORIASIS
     Route: 042
  2. METHOTREXATE [Concomitant]
     Route: 065
  3. FUMARIC ACID [Concomitant]
     Route: 065
  4. CICLOSPORIN [Concomitant]
     Route: 065

REACTIONS (18)
  - Autoimmune disorder [Unknown]
  - Haematuria [Unknown]
  - Skin cancer [Unknown]
  - Arthralgia [Unknown]
  - Otitis externa [Unknown]
  - Lower respiratory tract infection [Unknown]
  - Psoriasis [Unknown]
  - Infected dermal cyst [Unknown]
  - Cellulitis [Unknown]
  - Headache [Unknown]
  - Hypersensitivity [Unknown]
  - Upper respiratory tract infection [Unknown]
  - Liver function test abnormal [Not Recovered/Not Resolved]
  - Eye disorder [Unknown]
  - Lethargy [Unknown]
  - Urinary tract infection [Unknown]
  - Balance disorder [Unknown]
  - Furuncle [Unknown]
